FAERS Safety Report 4981181-8 (Version None)
Quarter: 2006Q2

REPORT INFORMATION
  Report Type: 
  Country: None (occurrence: None)
  Receive Date: 20060418
  Receipt Date: 20060403
  Transmission Date: 20061013
  Serious: Yes (Other)
  Sender: FDA-Public Use
  Company Number: 2006-BP-03848RO

PATIENT
  Age: 42 Year
  Sex: Male

DRUGS (1)
  1. METHADONE HCL [Suspect]
     Indication: DRUG REHABILITATION

REACTIONS (13)
  - AFFECT LABILITY [None]
  - AMNESIA [None]
  - BLOOD ALUMINIUM INCREASED [None]
  - CONVULSION [None]
  - COORDINATION ABNORMAL [None]
  - DYSARTHRIA [None]
  - ENCEPHALOPATHY [None]
  - INCORRECT ROUTE OF DRUG ADMINISTRATION [None]
  - INTENTIONAL DRUG MISUSE [None]
  - METAL POISONING [None]
  - MYOCLONUS [None]
  - RENAL IMPAIRMENT [None]
  - SPEECH DISORDER [None]
